FAERS Safety Report 20460617 (Version 1)
Quarter: 2022Q1

REPORT INFORMATION
  Report Type: Report from Study
  Country: US (occurrence: US)
  Receive Date: 20220211
  Receipt Date: 20220211
  Transmission Date: 20220423
  Serious: Yes (Hospitalization, Other)
  Sender: FDA-Public Use
  Company Number: US-BRISTOL-MYERS SQUIBB COMPANY-BMS-2022-017987

PATIENT
  Age: 59 Year
  Sex: Male
  Weight: 65.8 kg

DRUGS (1)
  1. NIVOLUMAB [Suspect]
     Active Substance: NIVOLUMAB
     Indication: Bile duct cancer
     Dosage: 240 MILLIGRAM, Q2WK
     Route: 042
     Dates: start: 20161230

REACTIONS (2)
  - Gastrointestinal obstruction [Unknown]
  - Fungaemia [Unknown]

NARRATIVE: CASE EVENT DATE: 20170106
